FAERS Safety Report 23918625 (Version 2)
Quarter: 2024Q2

REPORT INFORMATION
  Report Type: Spontaneous
  Country: DE (occurrence: DE)
  Receive Date: 20240530
  Receipt Date: 20240612
  Transmission Date: 20240717
  Serious: Yes (Hospitalization)
  Sender: FDA-Public Use
  Company Number: DE-CHIESI-2024CHF03045

PATIENT
  Sex: Male
  Weight: 70 kg

DRUGS (5)
  1. ELFABRIO [Suspect]
     Active Substance: PEGUNIGALSIDASE ALFA-IWXJ
     Indication: Fabry^s disease
     Dosage: UNK
     Route: 042
     Dates: start: 20240503, end: 20240503
  2. ELFABRIO [Suspect]
     Active Substance: PEGUNIGALSIDASE ALFA-IWXJ
     Dosage: UNK
     Route: 042
     Dates: start: 20240516, end: 20240516
  3. ELFABRIO [Suspect]
     Active Substance: PEGUNIGALSIDASE ALFA-IWXJ
     Dosage: UNK
     Route: 042
     Dates: start: 20240527, end: 20240527
  4. DIMETHINDENE MALEATE [Concomitant]
     Active Substance: DIMETHINDENE MALEATE
     Indication: Product used for unknown indication
     Dosage: 4 MILLIGRAM
     Route: 042
  5. DAPAGLIFLOZIN [Concomitant]
     Active Substance: DAPAGLIFLOZIN
     Indication: Product used for unknown indication
     Dosage: 10 MILLIGRAM

REACTIONS (4)
  - Blood potassium increased [Not Recovered/Not Resolved]
  - Prescribed overdose [Recovered/Resolved]
  - Off label use [Recovered/Resolved]
  - Off label use [Recovered/Resolved]

NARRATIVE: CASE EVENT DATE: 20240503
